FAERS Safety Report 10469385 (Version 1)
Quarter: 2014Q3

REPORT INFORMATION
  Report Type: Spontaneous
  Country: US (occurrence: None)
  Receive Date: 20140919
  Receipt Date: 20140919
  Transmission Date: 20150326
  Serious: Yes (Other)
  Sender: FDA-Public Use
  Company Number: 2010S1000569

PATIENT
  Age: 47 Year
  Sex: Male

DRUGS (3)
  1. METOPROLOL [Concomitant]
     Active Substance: METOPROLOL
  2. CATAPRESS (CLONIDINE) [Concomitant]
  3. PHOSPHO-SODA [Suspect]
     Active Substance: SODIUM PHOSPHATE, DIBASIC\SODIUM PHOSPHATE, MONOBASIC
     Route: 048
     Dates: start: 20070701

REACTIONS (6)
  - Back pain [None]
  - Headache [None]
  - Nephrogenic anaemia [None]
  - Renal cyst [None]
  - Renal failure chronic [None]
  - Hyperparathyroidism secondary [None]

NARRATIVE: CASE EVENT DATE: 2008
